FAERS Safety Report 5384208-7 (Version None)
Quarter: 2007Q3

REPORT INFORMATION
  Report Type: 
  Country: None (occurrence: None)
  Receive Date: 20070711
  Receipt Date: 20070702
  Transmission Date: 20080115
  Serious: Yes (Other)
  Sender: FDA-Public Use
  Company Number: B0478219A

PATIENT
  Age: 74 Year
  Sex: Female

DRUGS (6)
  1. ARIXTRA [Suspect]
     Dosage: 7.5MG PER DAY
     Route: 058
     Dates: start: 20070504, end: 20070509
  2. CEFAZOLIN SODIUM [Concomitant]
  3. MORPHINE [Concomitant]
     Route: 042
  4. LEVOTHYROXINE SODIUM [Concomitant]
  5. TARDYFERON [Concomitant]
  6. PERFALGAN [Concomitant]
     Route: 042

REACTIONS (2)
  - ANAEMIA [None]
  - RECTAL HAEMORRHAGE [None]
